FAERS Safety Report 9296154 (Version 2)
Quarter: 2013Q4

REPORT INFORMATION
  Report Type: Spontaneous
  Country: US (occurrence: US)
  Receive Date: 20130517
  Receipt Date: 20131030
  Transmission Date: 20140711
  Serious: Yes (Hospitalization, Other)
  Sender: FDA-Public Use
  Company Number: US-B.I. PHARMACEUTICALS,INC./RIDGEFIELD-2013-BI-13772BP

PATIENT
  Age: 83 Year
  Sex: Female
  Weight: 86.18 kg

DRUGS (22)
  1. PRADAXA [Suspect]
     Indication: ANTICOAGULANT THERAPY
     Dosage: 300 MG
     Dates: start: 20111025, end: 20120313
  2. PRADAXA [Suspect]
     Indication: ATRIAL FIBRILLATION
  3. CALCIUM CARBONATE [Concomitant]
     Route: 048
  4. POTASSIUM CHLORIDE [Concomitant]
     Dosage: 40 MEQ
     Route: 048
  5. METOPROLOL XL [Concomitant]
     Dosage: 25 MG
     Route: 048
  6. CARDIA XT [Concomitant]
     Route: 048
  7. GLYBURIDE [Concomitant]
     Dosage: 5 MG
     Route: 048
  8. LISINOPRIL [Concomitant]
     Dosage: 5 MG
     Route: 048
  9. ACTONEL [Concomitant]
     Route: 048
  10. LANTUS [Concomitant]
     Dosage: 10 U
     Route: 058
  11. ADVAIR [Concomitant]
  12. LEVOTHYROXINE [Concomitant]
     Dosage: 80 MCG
  13. SAXAGLIPTIN HCL/METFORMIN [Concomitant]
     Route: 048
  14. MULTIVITAMIN [Concomitant]
     Route: 048
  15. ALBUTEROL [Concomitant]
     Route: 055
  16. TRAMADOL [Concomitant]
     Route: 048
  17. LATANOPROST [Concomitant]
  18. MACRODANTIN [Concomitant]
     Dosage: 50 MG
     Route: 048
  19. MIRTAZAPINE [Concomitant]
     Dosage: 30 MG
     Route: 048
  20. LIPITOR [Concomitant]
     Dosage: 20 MG
     Route: 048
  21. GABAPENTIN [Concomitant]
     Route: 048
  22. LASIX [Concomitant]
     Dosage: 80 MG
     Route: 048

REACTIONS (3)
  - Lower gastrointestinal haemorrhage [Recovered/Resolved]
  - Renal failure acute [Unknown]
  - Urticaria [Recovered/Resolved]
